FAERS Safety Report 5423174-2 (Version None)
Quarter: 2007Q3

REPORT INFORMATION
  Report Type: 
  Country: None (occurrence: None)
  Receive Date: 20070730
  Receipt Date: 20070102
  Transmission Date: 20080115
  Serious: Yes (Hospitalization, Other)
  Sender: FDA-Public Use
  Company Number: 200616326BWH

PATIENT
  Age: 25 Year
  Sex: Female

DRUGS (2)
  1. AVELOX [Suspect]
     Indication: DRUG USE FOR UNKNOWN INDICATION
     Dosage: ORAL
     Route: 048
  2. ADVIL LIQUI-GELS [Suspect]

REACTIONS (1)
  - CONVULSION [None]
